FAERS Safety Report 7318888-3 (Version None)
Quarter: 2011Q1

REPORT INFORMATION
  Report Type: 
  Country: None (occurrence: None)
  Receive Date: 20110228
  Receipt Date: 20110103
  Transmission Date: 20110831
  Serious: No
  Sender: FDA-Public Use
  Company Number: US-MYLANLABS-2011S1000358

PATIENT
  Age: 62 Year
  Sex: Male

DRUGS (4)
  1. PLAVIX [Concomitant]
  2. CARVEDILOL [Concomitant]
  3. VALACYCLOVIR HYDROCHLORIDE [Suspect]
     Indication: PROPHYLAXIS
     Route: 048
     Dates: start: 20101001
  4. TAMSULOSIN [Concomitant]
     Dates: start: 20100101

REACTIONS (3)
  - DRUG EFFECT DECREASED [None]
  - HERPES SIMPLEX [None]
  - CHAPPED LIPS [None]
